FAERS Safety Report 22638382 (Version 1)
Quarter: 2023Q2

REPORT INFORMATION
  Report Type: Spontaneous
  Country: US (occurrence: US)
  Receive Date: 20230626
  Receipt Date: 20230626
  Transmission Date: 20230722
  Serious: No
  Sender: FDA-Public Use
  Company Number: US-ALKERMES INC.-ALK-2023-002427

PATIENT
  Sex: Male
  Weight: 81.633 kg

DRUGS (3)
  1. VIVITROL [Suspect]
     Active Substance: NALTREXONE
     Indication: Drug dependence
     Dosage: 380 MILLIGRAM, QMO
     Route: 030
     Dates: start: 20230523
  2. METHADONE [Suspect]
     Active Substance: METHADONE HYDROCHLORIDE
     Dosage: UNK
     Route: 065
  3. NALTREXONE [Concomitant]
     Active Substance: NALTREXONE
     Indication: Product used for unknown indication
     Dosage: UNK
     Route: 065

REACTIONS (11)
  - Therapeutic response shortened [Unknown]
  - Contraindicated product administered [Unknown]
  - Tremor [Unknown]
  - Tachyphrenia [Unknown]
  - Balance disorder [Unknown]
  - Dysarthria [Unknown]
  - Feeling abnormal [None]
  - Mood altered [Unknown]
  - Nausea [Unknown]
  - Fatigue [Unknown]
  - Drug withdrawal syndrome [Unknown]
